FAERS Safety Report 5294828-6 (Version None)
Quarter: 2007Q2

REPORT INFORMATION
  Report Type: 
  Country: None (occurrence: None)
  Receive Date: 20070412
  Receipt Date: 20070403
  Transmission Date: 20071010
  Serious: Yes (Other)
  Sender: FDA-Public Use
  Company Number: CA-ELI_LILLY_AND_COMPANY-CA200703005953

PATIENT
  Age: 58 Year
  Sex: Female

DRUGS (18)
  1. HUMALOG [Suspect]
     Indication: DIABETES MELLITUS
     Dosage: 40 U, DAILY (1/D)
     Route: 058
  2. HUMALOG [Suspect]
     Dosage: UNK, 3/D
     Route: 058
     Dates: start: 19990101
  3. HUMALOG [Suspect]
     Dosage: 55 U, DAILY (1/D)
     Route: 058
  4. HUMALOG [Suspect]
     Dosage: 53 U, DAILY (1/D)
     Route: 058
     Dates: start: 20070101
  5. ASPIRIN [Concomitant]
     Dosage: 80 MG, DAILY (1/D)
     Route: 048
     Dates: start: 19860101
  6. COMBIVENT [Concomitant]
     Indication: ASTHMA
     Dosage: UNK UG, 4/D
     Route: 055
     Dates: start: 19990101
  7. DICETEL [Concomitant]
     Indication: IRRITABLE BOWEL SYNDROME
     Dosage: 100 MG, 3/D
     Route: 048
     Dates: start: 19990101
  8. DOMPERIDONE [Concomitant]
     Indication: GASTROINTESTINAL MOTILITY DISORDER
     Dosage: 10 MG, 3/D
     Route: 048
     Dates: start: 19860101
  9. ENALAPRIL MALEATE [Concomitant]
     Indication: HYPERTENSION
     Dosage: 10 MG, 2/D
     Route: 048
     Dates: start: 19860101
  10. FLOVENT [Concomitant]
     Indication: ASTHMA
     Dosage: 250 UG, 2/D
     Route: 055
     Dates: start: 19990101
  11. HYDROCHLOROTHIAZIDE [Concomitant]
     Indication: HYPERTENSION
     Dosage: 12.5 MG, DAILY (1/D)
     Route: 048
     Dates: start: 19860101
  12. LASIX [Concomitant]
     Dosage: 20 MG, DAILY (1/D)
     Route: 048
     Dates: start: 20060301
  13. NITROGLYCERIN [Concomitant]
     Indication: CHEST PAIN
     Dosage: 0.3 MG, AS NEEDED
     Route: 060
     Dates: start: 19860101
  14. PARIET [Concomitant]
     Dosage: 10 MG, DAILY (1/D)
     Route: 048
     Dates: start: 19990101
  15. PLAVIX [Concomitant]
     Dosage: 75 MG, DAILY (1/D)
     Route: 048
     Dates: start: 19990101
  16. SALBUTAMOL [Concomitant]
     Indication: ASTHMA
     Dosage: 100 UG, 4/D
     Route: 055
     Dates: start: 19990101
  17. SENOKOT [Concomitant]
     Dosage: 17 MG, EACH EVENING
     Route: 048
     Dates: start: 19860101
  18. ZOCOR [Concomitant]
     Indication: BLOOD CHOLESTEROL
     Dosage: 40 MG, DAILY (1/D)
     Route: 048
     Dates: start: 19990101

REACTIONS (14)
  - BLOOD GLUCOSE DECREASED [None]
  - BLOOD GLUCOSE FLUCTUATION [None]
  - BLOOD GLUCOSE INCREASED [None]
  - CARDIOMEGALY [None]
  - CONTUSION [None]
  - DEEP VEIN THROMBOSIS [None]
  - EXCORIATION [None]
  - FALL [None]
  - HEPATIC STEATOSIS [None]
  - HYPERTROPHIC CARDIOMYOPATHY [None]
  - HYPOGLYCAEMIA [None]
  - INJECTION SITE URTICARIA [None]
  - MYOCARDIAL INFARCTION [None]
  - PITUITARY TUMOUR [None]
